FAERS Safety Report 10201668 (Version 2)
Quarter: 2014Q2

REPORT INFORMATION
  Report Type: Report from Study
  Country: US (occurrence: US)
  Receive Date: 20140528
  Receipt Date: 20140610
  Transmission Date: 20141212
  Serious: Yes (Hospitalization)
  Sender: FDA-Public Use
  Company Number: US-ACTELION-A-US2014-99343

PATIENT
  Age: 53 Year
  Sex: Female

DRUGS (3)
  1. MACITENTAN [Suspect]
     Indication: PULMONARY ARTERIAL HYPERTENSION
     Dosage: 10 MG, UNK
     Route: 048
     Dates: start: 20140507
  2. RIOCIGUAT [Concomitant]
  3. ASPIRIN [Concomitant]

REACTIONS (5)
  - Polyuria [Recovering/Resolving]
  - Blood potassium decreased [Recovering/Resolving]
  - Vision blurred [Recovering/Resolving]
  - Nasopharyngitis [Recovering/Resolving]
  - Dyspnoea [Recovering/Resolving]
